FAERS Safety Report 4731101-6 (Version None)
Quarter: 2005Q3

REPORT INFORMATION
  Report Type: 
  Country: None (occurrence: None)
  Receive Date: 20050728
  Receipt Date: 20050531
  Transmission Date: 20060218
  Serious: No
  Sender: FDA-Public Use
  Company Number: ZICO001219

PATIENT
  Age: 35 Year
  Sex: Female
  Weight: 49.8957 kg

DRUGS (3)
  1. PRIALT [Suspect]
     Indication: PAIN
     Dosage: 1.2 MCG/DAY INTRATHECAL
     Route: 037
     Dates: start: 20050420
  2. BACLOFEN [Concomitant]
  3. BUPIVACAINE [Concomitant]

REACTIONS (7)
  - ASTHENIA [None]
  - BLOOD PRESSURE SYSTOLIC DECREASED [None]
  - HYPOAESTHESIA [None]
  - INSOMNIA [None]
  - INTENTION TREMOR [None]
  - MULTIPLE SCLEROSIS [None]
  - SENSATION OF HEAVINESS [None]
